FAERS Safety Report 4296075-3 (Version None)
Quarter: 2004Q1

REPORT INFORMATION
  Report Type: 
  Country: None (occurrence: None)
  Receive Date: 20040217
  Receipt Date: 20040205
  Transmission Date: 20041129
  Serious: Yes (Hospitalization)
  Sender: FDA-Public Use
  Company Number: 200410386EU

PATIENT
  Age: 68 Year
  Sex: Female

DRUGS (3)
  1. DOCETAXEL [Suspect]
     Indication: OVARIAN CANCER
     Route: 042
     Dates: start: 20040107, end: 20040107
  2. CELECOXIB [Suspect]
     Indication: OVARIAN CANCER
     Route: 048
     Dates: start: 20040107, end: 20040108
  3. CARBOPLATIN [Suspect]
     Indication: OVARIAN CANCER
     Route: 042
     Dates: start: 20040107, end: 20040107

REACTIONS (4)
  - DUODENAL ULCER [None]
  - GASTROINTESTINAL NECROSIS [None]
  - HAEMATEMESIS [None]
  - MELAENA [None]
